FAERS Safety Report 23218266 (Version 1)
Quarter: 2023Q4

REPORT INFORMATION
  Report Type: Spontaneous
  Country: US (occurrence: US)
  Receive Date: 20231122
  Receipt Date: 20231122
  Transmission Date: 20240109
  Serious: No
  Sender: FDA-Public Use
  Company Number: US-PERRIGO-23US003515

PATIENT
  Age: 75 Year
  Sex: Female
  Weight: 74.83 kg

DRUGS (2)
  1. NICOTINE POLACRILEX [Suspect]
     Active Substance: NICOTINE
     Indication: Smoking cessation therapy
     Dosage: 2 MG, BID
     Route: 002
     Dates: start: 20230222
  2. NICOTINE POLACRILEX [Suspect]
     Active Substance: NICOTINE
     Dosage: UNKNOWN, SNGLE
     Route: 048
     Dates: start: 20230222, end: 20230222

REACTIONS (1)
  - Incorrect route of product administration [Unknown]

NARRATIVE: CASE EVENT DATE: 20230315
